FAERS Safety Report 9130855 (Version 4)
Quarter: 2013Q1

REPORT INFORMATION
  Report Type: Spontaneous
  Country: CA (occurrence: CA)
  Receive Date: 20130301
  Receipt Date: 20130327
  Transmission Date: 20140127
  Serious: Yes (Other)
  Sender: FDA-Public Use
  Company Number: CA-PFIZER INC-2013070873

PATIENT
  Age: 61 Year
  Sex: Female
  Weight: 86 kg

DRUGS (5)
  1. TECTA [Suspect]
     Indication: GASTROOESOPHAGEAL REFLUX DISEASE
     Dosage: 40 MG, 1X/DAY
     Route: 048
     Dates: start: 20120416, end: 20120522
  2. AMOXICILLIN [Suspect]
     Dosage: 500 MG, 3X/DAY
     Route: 048
     Dates: end: 20120522
  3. COVERSYL [Suspect]
     Indication: HYPERTENSION
     Dosage: 4 MG, 1X/DAY
     Route: 048
     Dates: start: 20120416, end: 20120513
  4. ATENOLOL [Concomitant]
     Indication: HYPERTENSION
     Dosage: 50 MG, UNK
     Dates: start: 20030227
  5. ZOMIG [Concomitant]
     Indication: MIGRAINE
     Dosage: 2.5 MG, AS NEEDED
     Dates: start: 20030227

REACTIONS (5)
  - Bile duct cancer [Unknown]
  - Pancreatic mass [Unknown]
  - Jaundice cholestatic [Unknown]
  - Petechiae [Unknown]
  - Diarrhoea [Unknown]
